FAERS Safety Report 21660002 (Version 1)
Quarter: 2022Q4

REPORT INFORMATION
  Report Type: Spontaneous
  Country: US (occurrence: US)
  Receive Date: 20221130
  Receipt Date: 20221130
  Transmission Date: 20230113
  Serious: Yes (Hospitalization)
  Sender: FDA-Public Use
  Company Number: US-STRIDES ARCOLAB LIMITED-2022SP015989

PATIENT
  Age: 18 Year
  Sex: Female

DRUGS (8)
  1. DOXORUBICIN [Suspect]
     Active Substance: DOXORUBICIN
     Indication: Diffuse large B-cell lymphoma
     Dosage: UNK UNK, CYCLICAL (4 CYCLES) (R-HYPER-CVAD PROTOCOL)
     Route: 065
  2. DEXAMETHASONE [Suspect]
     Active Substance: DEXAMETHASONE
     Indication: Diffuse large B-cell lymphoma
     Dosage: UNK UNK, CYCLICAL (4 CYCLES) (R-HYPER-CVAD PROTOCOL)
     Route: 065
  3. METHOTREXATE [Suspect]
     Active Substance: METHOTREXATE
     Indication: Diffuse large B-cell lymphoma
     Dosage: UNK UNK, CYCLICAL (4 CYCLES) (R-HYPER-CVAD PROTOCOL)
     Route: 065
  4. RITUXIMAB [Suspect]
     Active Substance: RITUXIMAB
     Indication: Diffuse large B-cell lymphoma
     Dosage: UNK UNK, CYCLICAL (4 CYCLES) (R-HYPER-CVAD PROTOCOL)
     Route: 065
  5. CYCLOPHOSPHAMIDE [Suspect]
     Active Substance: CYCLOPHOSPHAMIDE
     Indication: Diffuse large B-cell lymphoma
     Dosage: UNK UNK, CYCLICAL (4 CYCLES) (R-HYPER-CVAD PROTOCOL)
     Route: 065
  6. VINCRISTINE [Suspect]
     Active Substance: VINCRISTINE
     Indication: Diffuse large B-cell lymphoma
     Dosage: UNK UNK, CYCLICAL (4 CYCLES) (R-HYPER-CVAD PROTOCOL)
     Route: 065
  7. CYTARABINE [Suspect]
     Active Substance: CYTARABINE
     Indication: Diffuse large B-cell lymphoma
     Dosage: UNK UNK, CYCLICAL (4 CYCLES) (R-HYPER-CVAD PROTOCOL)
     Route: 065
  8. ENTECAVIR [Concomitant]
     Active Substance: ENTECAVIR
     Indication: Hepatitis B reactivation
     Dosage: 0.5 MILLIGRAM DAILY
     Route: 065

REACTIONS (7)
  - Thoracic vertebral fracture [Unknown]
  - Febrile neutropenia [Unknown]
  - Pericardial effusion [Unknown]
  - Superior sagittal sinus thrombosis [Unknown]
  - Asthenia [Unknown]
  - Pain [Unknown]
  - Anaemia [Unknown]
